FAERS Safety Report 4457643-9 (Version None)
Quarter: 2004Q3

REPORT INFORMATION
  Report Type: 
  Country: None (occurrence: None)
  Receive Date: 20040922
  Receipt Date: 20040915
  Transmission Date: 20050211
  Serious: No
  Sender: FDA-Public Use
  Company Number: TAP2004Q01126

PATIENT
  Age: 74 Year
  Sex: Female

DRUGS (2)
  1. PREVACID [Suspect]
     Dosage: 30 MG, 1 IN 1 D, PER ORAL
     Route: 048
     Dates: start: 20040812
  2. HYZAAR [Concomitant]

REACTIONS (4)
  - ABNORMAL SENSATION IN EYE [None]
  - EYE REDNESS [None]
  - PHOTOPHOBIA [None]
  - TREATMENT NONCOMPLIANCE [None]
